FAERS Safety Report 4864951-6 (Version None)
Quarter: 2005Q4

REPORT INFORMATION
  Report Type: 
  Country: None (occurrence: None)
  Receive Date: 20051219
  Receipt Date: 20051206
  Transmission Date: 20060501
  Serious: Yes (Hospitalization)
  Sender: FDA-Public Use
  Company Number: GXBR2005US01774

PATIENT
  Age: 90 Year
  Sex: Female

DRUGS (8)
  1. AMIODARONE HCL [Suspect]
     Indication: ARRHYTHMIA
     Dosage: 200 MG, QD, ORAL
     Route: 048
     Dates: start: 20050501
  2. AVAPRO [Concomitant]
  3. FUROSEMIDE [Concomitant]
  4. LEXAPRO [Concomitant]
  5. ADVAIR DISKUS (FLUTICASONE PROPIONATE, SALMETEROL XINAFOATE) [Concomitant]
  6. XOPENEX [Concomitant]
  7. SINGULAIR [Concomitant]
  8. ARICEPT [Concomitant]

REACTIONS (6)
  - ASTHMA [None]
  - BALANCE DISORDER [None]
  - CONDITION AGGRAVATED [None]
  - DYSPNOEA [None]
  - FALL [None]
  - LUNG DISORDER [None]
